FAERS Safety Report 8041808-3 (Version None)
Quarter: 2012Q1

REPORT INFORMATION
  Report Type: 
  Country: None (occurrence: None)
  Receive Date: 20120112
  Receipt Date: 20120104
  Transmission Date: 20120608
  Serious: Yes (Hospitalization)
  Sender: FDA-Public Use
  Company Number: US-ACTELION-A-NJ2011-51901

PATIENT

DRUGS (3)
  1. OXYGEN [Concomitant]
  2. TRACLEER [Suspect]
     Indication: PULMONARY ARTERIAL HYPERTENSION
     Dosage: UNK
     Route: 048
     Dates: start: 20110329
  3. REVATIO [Concomitant]

REACTIONS (3)
  - OXYGEN SATURATION DECREASED [None]
  - NASOPHARYNGITIS [None]
  - LUNG DISORDER [None]
